FAERS Safety Report 26187797 (Version 1)
Quarter: 2025Q4

REPORT INFORMATION
  Report Type: Spontaneous
  Country: US (occurrence: US)
  Receive Date: 20251222
  Receipt Date: 20251222
  Transmission Date: 20260118
  Serious: Yes (Life-Threatening, Hospitalization, Other)
  Sender: DR REDDYS
  Company Number: US-DRL-USA-USA/2025/12/019268

PATIENT
  Age: 34 Year
  Sex: Male

DRUGS (1)
  1. METHAMPHETAMINE [Suspect]
     Active Substance: METHAMPHETAMINE
     Indication: Product used for unknown indication

REACTIONS (5)
  - Drug-induced liver injury [Recovering/Resolving]
  - Hyperthermia [Recovering/Resolving]
  - Seizure [Unknown]
  - Toxicity to various agents [Recovering/Resolving]
  - Overdose [Unknown]
